FAERS Safety Report 5868321-3 (Version None)
Quarter: 2008Q3

REPORT INFORMATION
  Report Type: 
  Country: None (occurrence: None)
  Receive Date: 20080902
  Receipt Date: 20080902
  Transmission Date: 20090109
  Serious: Yes (Death)
  Sender: FDA-Public Use
  Company Number: None

PATIENT
  Age: 13 Year
  Sex: Female
  Weight: 70 kg

DRUGS (1)
  1. CLOFARABINE [Suspect]
     Indication: ACUTE MYELOID LEUKAEMIA
     Dosage: 88 MG DAILY X 5 DOSES IV
     Route: 042
     Dates: start: 20071017, end: 20071021

REACTIONS (8)
  - ADRENAL INSUFFICIENCY [None]
  - CAPILLARY LEAK SYNDROME [None]
  - GRAFT VERSUS HOST DISEASE [None]
  - HYPOTENSION [None]
  - INFECTION [None]
  - RASH [None]
  - RESPIRATORY DISTRESS [None]
  - RESPIRATORY FAILURE [None]
